FAERS Safety Report 6476691-0 (Version None)
Quarter: 2009Q4

REPORT INFORMATION
  Report Type: 
  Country: None (occurrence: None)
  Receive Date: 20091207
  Receipt Date: 20091201
  Transmission Date: 20100525
  Serious: Yes (Other)
  Sender: FDA-Public Use
  Company Number: US-ROCHE-642926

PATIENT
  Sex: Female
  Weight: 54.4 kg

DRUGS (3)
  1. CAPECITABINE [Suspect]
     Indication: COLORECTAL CANCER
     Route: 048
     Dates: start: 20090211, end: 20090606
  2. CAPECITABINE [Suspect]
     Dosage: DOSE REPORTED: 500 MG IN AM AND 1000 MG IN PM.
     Route: 048
     Dates: end: 20091031
  3. CAPECITABINE [Suspect]
     Route: 048

REACTIONS (5)
  - FALL [None]
  - HIP FRACTURE [None]
  - MALAISE [None]
  - NAUSEA [None]
  - SURGERY [None]
